FAERS Safety Report 25068184 (Version 2)
Quarter: 2025Q2

REPORT INFORMATION
  Report Type: Spontaneous
  Country: ES (occurrence: ES)
  Receive Date: 20250312
  Receipt Date: 20250429
  Transmission Date: 20250716
  Serious: Yes (Disabling, Other)
  Sender: NOVARTIS
  Company Number: ES-002147023-NVSC2025ES038604

PATIENT
  Age: 74 Year
  Sex: Female

DRUGS (6)
  1. DABRAFENIB [Suspect]
     Active Substance: DABRAFENIB
     Indication: Metastatic malignant melanoma
     Route: 065
  2. DABRAFENIB [Suspect]
     Active Substance: DABRAFENIB
     Dosage: UNK, Q12H (2 X 75 MG)
     Route: 048
     Dates: start: 20250220
  3. DABRAFENIB [Suspect]
     Active Substance: DABRAFENIB
     Dosage: UNK, Q12H
     Route: 048
  4. TRAMETINIB [Suspect]
     Active Substance: TRAMETINIB
     Indication: Metastatic malignant melanoma
     Route: 065
  5. TRAMETINIB [Suspect]
     Active Substance: TRAMETINIB
     Dosage: 2 MG, Q24H
     Route: 048
     Dates: start: 20250220
  6. TRAMETINIB [Suspect]
     Active Substance: TRAMETINIB
     Dosage: 1 MG, Q12H
     Route: 048

REACTIONS (5)
  - Ocular toxicity [Unknown]
  - Vision blurred [Unknown]
  - Retinal detachment [Unknown]
  - Ocular discomfort [Recovered/Resolved]
  - Chromatopsia [Unknown]

NARRATIVE: CASE EVENT DATE: 20250228
